FAERS Safety Report 8210280-2 (Version None)
Quarter: 2012Q1

REPORT INFORMATION
  Report Type: 
  Country: None (occurrence: None)
  Receive Date: 20120314
  Receipt Date: 20111122
  Transmission Date: 20120608
  Serious: No
  Sender: FDA-Public Use
  Company Number: US-ASTRAZENECA-2011SE71043

PATIENT
  Age: 75 Year
  Sex: Male

DRUGS (6)
  1. TOPROL-XL [Suspect]
     Route: 048
  2. TOPROL-XL [Suspect]
     Route: 048
  3. SIMVASTATIN [Concomitant]
  4. ASPIRIN [Concomitant]
  5. LOSARTAN POTASSIUM [Concomitant]
  6. HYDROCHLOROT [Concomitant]

REACTIONS (2)
  - DRUG EFFECT INCREASED [None]
  - HEART RATE DECREASED [None]
